FAERS Safety Report 15010385 (Version 1)
Quarter: 2018Q2

REPORT INFORMATION
  Report Type: Spontaneous
  Country: US (occurrence: US)
  Receive Date: 20180521
  Receipt Date: 20180521
  Transmission Date: 20180711
  Serious: Yes (Death)
  Sender: FDA-Public Use
  Company Number: None

PATIENT
  Age: 68 Year
  Sex: Male

DRUGS (13)
  1. EPINEPHRINE. [Concomitant]
     Active Substance: EPINEPHRINE
  2. AMIODARONE [Concomitant]
     Active Substance: AMIODARONE
  3. INSULIN REGULAR [Concomitant]
     Active Substance: INSULIN NOS
  4. VANCOMYCIN [Concomitant]
     Active Substance: VANCOMYCIN
  5. CASPOFUNGIN [Concomitant]
     Active Substance: CASPOFUNGIN
  6. BISACODYL. [Concomitant]
     Active Substance: BISACODYL
  7. DIGOXIN. [Suspect]
     Active Substance: DIGOXIN
     Indication: ATRIAL FIBRILLATION
     Dosage: ?          OTHER DOSE:500 MCG + 250 MCG;?
     Route: 042
     Dates: start: 20180417, end: 20180423
  8. FENTANYL. [Concomitant]
     Active Substance: FENTANYL
  9. PANTOPRAZOLE [Concomitant]
     Active Substance: PANTOPRAZOLE
  10. SENNA [Concomitant]
     Active Substance: SENNA LEAF\SENNOSIDES\SENNOSIDES A AND B
  11. CEFEPIME [Concomitant]
     Active Substance: CEFEPIME HYDROCHLORIDE
  12. EPOPROSTENOL. [Concomitant]
     Active Substance: EPOPROSTENOL
  13. PHENYLEPHRINE [Concomitant]
     Active Substance: PHENYLEPHRINE\PHENYLEPHRINE HYDROCHLORIDE

REACTIONS (3)
  - Cardiac arrest [None]
  - Bradycardia [None]
  - Cardioactive drug level increased [None]

NARRATIVE: CASE EVENT DATE: 20180223
